FAERS Safety Report 4700735-7 (Version None)
Quarter: 2005Q2

REPORT INFORMATION
  Report Type: 
  Country: None (occurrence: None)
  Receive Date: 20050627
  Receipt Date: 20050602
  Transmission Date: 20051028
  Serious: Yes (Death)
  Sender: FDA-Public Use
  Company Number: US-ABBOTT-05P-163-0304072-00

PATIENT
  Sex: Female

DRUGS (1)
  1. VICOPROFEN [Suspect]
     Indication: COMPLETED SUICIDE

REACTIONS (2)
  - COMPLETED SUICIDE [None]
  - OVERDOSE [None]
